FAERS Safety Report 24450236 (Version 1)
Quarter: 2024Q4

REPORT INFORMATION
  Report Type: Spontaneous
  Country: US (occurrence: None)
  Receive Date: 20241016
  Receipt Date: 20241016
  Transmission Date: 20250115
  Serious: Yes (Other)
  Sender: Public
  Company Number: None

PATIENT
  Age: 20 Year
  Sex: Male
  Weight: 30.9 kg

DRUGS (4)
  1. LORLATINIB [Suspect]
     Active Substance: LORLATINIB
     Indication: Neuroblastoma
     Dosage: FREQUENCY : 3 TIMES A DAY;?
     Route: 048
     Dates: start: 20180806, end: 20190121
  2. IRINOTECAN [Suspect]
     Active Substance: IRINOTECAN
  3. TEMOZOLOMIDE [Suspect]
     Active Substance: TEMOZOLOMIDE
  4. DINUTUXIMAB [Suspect]
     Active Substance: DINUTUXIMAB

REACTIONS (6)
  - Epistaxis [None]
  - Thrombocytopenia [None]
  - Haematemesis [None]
  - Gastrooesophageal reflux disease [None]
  - Abdominal pain [None]
  - Disease progression [None]

NARRATIVE: CASE EVENT DATE: 20240806
